FAERS Safety Report 6690455-4 (Version None)
Quarter: 2010Q2

REPORT INFORMATION
  Report Type: 
  Country: None (occurrence: None)
  Receive Date: 20100420
  Receipt Date: 20100420
  Transmission Date: 20101027
  Serious: Yes (Hospitalization)
  Sender: FDA-Public Use
  Company Number: None

PATIENT
  Age: 40 Year
  Sex: Female
  Weight: 121.564 kg

DRUGS (1)
  1. FERUMOXYTOL 510MG/17ML AMAG PHARMACEUTICALS [Suspect]
     Indication: ANAEMIA
     Dosage: 510MG(17ML) X1 IV PUSH
     Dates: start: 20100416

REACTIONS (3)
  - ANAPHYLACTIC REACTION [None]
  - HEADACHE [None]
  - HYPOXIA [None]
